FAERS Safety Report 13302703 (Version 2)
Quarter: 2017Q3

REPORT INFORMATION
  Report Type: Spontaneous
  Country: IT (occurrence: IT)
  Receive Date: 20170307
  Receipt Date: 20170821
  Transmission Date: 20171127
  Serious: Yes (Death, Hospitalization)
  Sender: FDA-Public Use
  Company Number: PHHY2017IT034860

PATIENT
  Age: 54 Year
  Sex: Female

DRUGS (1)
  1. ZOMETA [Suspect]
     Active Substance: ZOLEDRONIC ACID
     Indication: METASTASES TO BONE
     Dosage: 4 MG, QMO
     Route: 042

REACTIONS (11)
  - Osteonecrosis of jaw [Unknown]
  - Prognathism [Unknown]
  - Malignant neoplasm progression [Fatal]
  - Jaw fracture [Unknown]
  - Swelling face [Unknown]
  - Actinomyces test positive [Unknown]
  - Purulence [Unknown]
  - Breast cancer metastatic [Fatal]
  - Oral cavity fistula [Unknown]
  - Pain in jaw [Unknown]
  - Abscess jaw [Unknown]

NARRATIVE: CASE EVENT DATE: 200408
